FAERS Safety Report 5475329-9 (Version None)
Quarter: 2007Q4

REPORT INFORMATION
  Report Type: 
  Country: None (occurrence: None)
  Receive Date: 20071001
  Receipt Date: 20070918
  Transmission Date: 20080405
  Serious: Yes (Other)
  Sender: FDA-Public Use
  Company Number: 2007323750

PATIENT
  Age: 46 Year
  Sex: Male
  Weight: 83.9 kg

DRUGS (1)
  1. SUDAFED 12 HOUR [Suspect]
     Indication: NASOPHARYNGITIS
     Dosage: 1 TABLET EVERY 12 HOUR (2 IN 1 D),ORAL
     Route: 048
     Dates: start: 20070526, end: 20070530

REACTIONS (6)
  - DRUG ERUPTION [None]
  - DRY SKIN [None]
  - EXFOLIATIVE RASH [None]
  - HYPOAESTHESIA [None]
  - NAIL GROWTH ABNORMAL [None]
  - SKIN DISCOLOURATION [None]
